FAERS Safety Report 19070743 (Version 1)
Quarter: 2021Q1

REPORT INFORMATION
  Report Type: Spontaneous
  Country: NL (occurrence: NL)
  Receive Date: 20210330
  Receipt Date: 20210330
  Transmission Date: 20210420
  Serious: Yes (Hospitalization)
  Sender: FDA-Public Use
  Company Number: NL-ACCORD-220847

PATIENT
  Age: 74 Year
  Sex: Male
  Weight: 75 kg

DRUGS (11)
  1. METOCLOPRAMIDE. [Concomitant]
     Active Substance: METOCLOPRAMIDE
     Dosage: TABLET, 10 MG (MILLIGRAM)
  2. OXYCODONE/OXYCODONE HYDROCHLORIDE/OXYCODONE PECTINATE/OXYCODONE TEREPHTHALATE [Concomitant]
     Active Substance: OXYCODONE
     Dosage: ORODISPERSIBLE TABLET, 5 MG (MILLIGRAM)
  3. GEMCITABINE/GEMCITABINE HYDROCHLORIDE [Suspect]
     Active Substance: GEMCITABINE\GEMCITABINE HYDROCHLORIDE
     Indication: MESOTHELIOMA
     Dosage: 40MG / ML,1X PER DAY 1 PIECE
     Dates: start: 20210211
  4. PREDNISOLON [Concomitant]
     Active Substance: PREDNISOLONE
     Dosage: TABLET, 5 MG (MILLIGRAM)
  5. ROSUVASTATIN/ROSUVASTATIN CALCIUM [Concomitant]
     Active Substance: ROSUVASTATIN CALCIUM
     Dosage: TABLET, 10 MG (MILLIGRAM)
  6. TAMSULOSIN/TAMSULOSIN HYDROCHLORIDE [Concomitant]
     Active Substance: TAMSULOSIN HYDROCHLORIDE
     Dosage: MODIFIED?RELEASE CAPSULE, 0.4 MG (MILLIGRAM)
  7. OXYCODONE/OXYCODONE HYDROCHLORIDE/OXYCODONE PECTINATE/OXYCODONE TEREPHTHALATE [Concomitant]
     Active Substance: OXYCODONE
     Dosage: MODIFIED?RELEASE TABLET, 10 MG (MILLIGRAM)
  8. OMEPRAZOLE. [Concomitant]
     Active Substance: OMEPRAZOLE
     Dosage: GASTRO?RESISTANT CAPSULE, 40 MG (MILLIGRAMS)
  9. ENALAPRIL [Concomitant]
     Active Substance: ENALAPRIL
     Dosage: TABLET, 10 MG (MILLIGRAM)
  10. FOLIC ACID. [Concomitant]
     Active Substance: FOLIC ACID
     Dosage: TABLET, 0,5 MG (MILLIGRAM)
  11. OXAZEPAM. [Concomitant]
     Active Substance: OXAZEPAM
     Dosage: TABLET, 10 MG (MILLIGRAM)

REACTIONS (4)
  - Nausea [Recovering/Resolving]
  - Vomiting [Recovering/Resolving]
  - Pyrexia [Recovering/Resolving]
  - Hypophagia [Recovering/Resolving]

NARRATIVE: CASE EVENT DATE: 20210211
